FAERS Safety Report 5020017-6 (Version None)
Quarter: 2006Q2

REPORT INFORMATION
  Report Type: 
  Country: None (occurrence: None)
  Receive Date: 20060607
  Receipt Date: 20060403
  Transmission Date: 20061013
  Serious: Yes (Life-Threatening, Hospitalization)
  Sender: FDA-Public Use
  Company Number: GR-BRISTOL-MYERS SQUIBB COMPANY-13333505

PATIENT
  Age: 60 Year
  Sex: Male
  Weight: 96 kg

DRUGS (2)
  1. PROCEF TABS 500 MG [Suspect]
     Indication: NASAL OPERATION
     Route: 048
     Dates: start: 20060327, end: 20060401
  2. DESLORATADINE [Concomitant]

REACTIONS (1)
  - TOXIC EPIDERMAL NECROLYSIS [None]
